FAERS Safety Report 6850438-8 (Version None)
Quarter: 2010Q3

REPORT INFORMATION
  Report Type: 
  Country: None (occurrence: None)
  Receive Date: 20100716
  Receipt Date: 20071015
  Transmission Date: 20110219
  Serious: No
  Sender: FDA-Public Use
  Company Number: US-PFIZER INC-2007087807

PATIENT
  Sex: Female
  Weight: 72.727 kg

DRUGS (7)
  1. CHANTIX [Suspect]
     Indication: SMOKING CESSATION THERAPY
     Route: 048
     Dates: start: 20070912
  2. HYDROCODONE [Concomitant]
  3. ALPRAZOLAM [Concomitant]
  4. ADVAIR DISKUS 100/50 [Concomitant]
  5. COMBIVENT [Concomitant]
  6. SPIRIVA [Concomitant]
  7. DECONGESTANT [Concomitant]

REACTIONS (1)
  - NAUSEA [None]
